FAERS Safety Report 23030547 (Version 1)
Quarter: 2023Q4

REPORT INFORMATION
  Report Type: Spontaneous
  Country: HU (occurrence: HU)
  Receive Date: 20231005
  Receipt Date: 20231005
  Transmission Date: 20240109
  Serious: Yes (Hospitalization, Other)
  Sender: FDA-Public Use
  Company Number: HU-AMGEN-HUNSP2023171924

PATIENT
  Age: 44 Year
  Sex: Male

DRUGS (2)
  1. ADALIMUMAB [Suspect]
     Active Substance: ADALIMUMAB
     Indication: Ankylosing spondylitis
     Dosage: UNK
     Route: 065
  2. PFIZER-BIONTECH COVID-19 VACCINE [Concomitant]
     Active Substance: TOZINAMERAN
     Dosage: UNK
     Dates: start: 202108

REACTIONS (6)
  - Crohn^s disease [Unknown]
  - Ileus [Unknown]
  - Intestinal perforation [Unknown]
  - Disseminated tuberculosis [Unknown]
  - Mobility decreased [Unknown]
  - Arthralgia [Unknown]
